FAERS Safety Report 7788319-8 (Version None)
Quarter: 2011Q3

REPORT INFORMATION
  Report Type: 
  Country: None (occurrence: None)
  Receive Date: 20110930
  Receipt Date: 20110922
  Transmission Date: 20111222
  Serious: Yes (Other)
  Sender: FDA-Public Use
  Company Number: JP-ASTELLAS-2011JP006721

PATIENT
  Age: 66 Year
  Sex: Male

DRUGS (9)
  1. PROGRAF [Suspect]
     Indication: BEHCET'S SYNDROME
     Dosage: UNK
     Route: 065
  2. PREDNISOLONE [Concomitant]
     Route: 065
  3. COLCHICINE [Concomitant]
     Indication: BEHCET'S SYNDROME
     Route: 065
  4. MESALAMINE [Concomitant]
     Route: 065
  5. PREDNISOLONE [Concomitant]
     Indication: BEHCET'S SYNDROME
     Route: 065
  6. PREDNISOLONE [Concomitant]
     Route: 065
  7. INFLIXIMAB [Concomitant]
     Indication: BEHCET'S SYNDROME
     Route: 065
  8. MESALAMINE [Concomitant]
     Indication: BEHCET'S SYNDROME
     Route: 065
  9. MESALAMINE [Concomitant]
     Route: 065

REACTIONS (1)
  - OFF LABEL USE [None]
